FAERS Safety Report 5266547-3 (Version None)
Quarter: 2007Q1

REPORT INFORMATION
  Report Type: 
  Country: None (occurrence: None)
  Receive Date: 20070315
  Receipt Date: 20070305
  Transmission Date: 20070707
  Serious: Yes (Life-Threatening, Hospitalization, Other)
  Sender: FDA-Public Use
  Company Number: DE-SHR-DE-2007-005266

PATIENT
  Age: 48 Year
  Sex: Female
  Weight: 92 kg

DRUGS (1)
  1. ULTRAVIST 300 [Suspect]
     Dosage: 100 ML, 1 DOSE
     Route: 042
     Dates: start: 20070205, end: 20070205

REACTIONS (3)
  - CIRCULATORY COLLAPSE [None]
  - DYSPNOEA [None]
  - LARYNGEAL OEDEMA [None]
